FAERS Safety Report 4302056-3 (Version None)
Quarter: 2004Q1

REPORT INFORMATION
  Report Type: 
  Country: None (occurrence: None)
  Receive Date: 20040220
  Receipt Date: 20040129
  Transmission Date: 20041129
  Serious: Yes (Hospitalization)
  Sender: FDA-Public Use
  Company Number: JP_040102535

PATIENT
  Age: 58 Year
  Sex: Male
  Weight: 60 kg

DRUGS (9)
  1. GEMZAR [Suspect]
     Indication: PANCREATIC CARCINOMA
     Dosage: 1377 MG/OTHER
     Route: 050
     Dates: start: 20031110, end: 20031224
  2. MOBIC [Concomitant]
  3. FENTANYL [Concomitant]
  4. VOLTAREN [Concomitant]
  5. PARIET (RABEPRAZOLE SODIUM) [Concomitant]
  6. AMITRIPTYLINE HYDROCHLORIDE [Concomitant]
  7. AMOBAN (ZOPICLONE) [Concomitant]
  8. MAGNESIUM OXIDE [Concomitant]
  9. PURSENNIDE (SENNA LEAF) [Concomitant]

REACTIONS (3)
  - BACTERIA SPUTUM IDENTIFIED [None]
  - HYPOXIA [None]
  - INTERSTITIAL LUNG DISEASE [None]
